FAERS Safety Report 9123991 (Version 1)
Quarter: 2013Q1

REPORT INFORMATION
  Report Type: Spontaneous
  Country: GB (occurrence: GB)
  Receive Date: 20130116
  Receipt Date: 20130116
  Transmission Date: 20140127
  Serious: Yes (Other)
  Sender: FDA-Public Use
  Company Number: GB-PFIZER INC-2013012181

PATIENT
  Age: 70 Year
  Sex: Male
  Weight: 70 kg

DRUGS (13)
  1. ATORVASTATIN [Suspect]
     Indication: HYPERCHOLESTEROLAEMIA
     Dosage: 20 MG, 1X/DAY
     Route: 048
     Dates: start: 201207, end: 20120831
  2. AMLODIPINE [Concomitant]
     Dosage: 10 MG, 1X/DAY
  3. DOXAZOSIN [Concomitant]
     Dosage: 2 MG, 1X/DAY
  4. RAMIPRIL [Concomitant]
     Dosage: UNK
  5. ACETYLSALICYLIC ACID [Concomitant]
     Dosage: 75 MG, 1X/DAY
  6. BENDROFLUMETHIAZIDE [Concomitant]
     Dosage: 2.5 MG, 1X/DAY
  7. TAMSULOSIN [Concomitant]
     Dosage: 400 UG, UNK
  8. COD-LIVER OIL [Concomitant]
     Dosage: 1000 MG, 1X/DAY
  9. GLUCOSAMINE [Concomitant]
     Dosage: 2 KCL
  10. VITAMIN B COMPLEX [Concomitant]
     Dosage: 1 DF, 1X/DAY
  11. METFORMIN [Concomitant]
     Dosage: 1000 MG, 1X/DAY
  12. GARLIC [Concomitant]
     Dosage: 2 MG, 1X/DAY
  13. METHYLSULFONYLMETHANE [Concomitant]
     Dosage: UNK

REACTIONS (4)
  - Muscle injury [Recovered/Resolved]
  - Local swelling [Unknown]
  - Muscle rupture [Unknown]
  - Product substitution issue [Unknown]
